FAERS Safety Report 23317162 (Version 7)
Quarter: 2024Q4

REPORT INFORMATION
  Report Type: Spontaneous
  Country: US (occurrence: US)
  Receive Date: 20231219
  Receipt Date: 20241218
  Transmission Date: 20250115
  Serious: Yes (Hospitalization)
  Sender: ROCHE
  Company Number: US-ROCHE-3425218

PATIENT
  Age: 18 Year
  Sex: Male

DRUGS (10)
  1. HEMLIBRA [Suspect]
     Active Substance: EMICIZUMAB-KXWH
     Indication: Factor VIII deficiency
     Route: 058
     Dates: start: 201810
  2. HEMLIBRA [Suspect]
     Active Substance: EMICIZUMAB-KXWH
     Route: 058
     Dates: start: 201810
  3. HEMLIBRA [Suspect]
     Active Substance: EMICIZUMAB-KXWH
     Dosage: STRENGTH: 60 MG/0.4 ML
     Route: 058
     Dates: start: 201810
  4. HEMLIBRA [Suspect]
     Active Substance: EMICIZUMAB-KXWH
     Dosage: STRENGTH: 60 MG/0.4 ML, 30 MG/2ML
     Route: 058
     Dates: start: 201810
  5. HEMLIBRA [Suspect]
     Active Substance: EMICIZUMAB-KXWH
     Dosage: STRENGTH: 300 MG/2ML
     Route: 058
     Dates: start: 201810
  6. EPIDIOLEX ORAL SOLUTION [Concomitant]
     Indication: Epilepsy
     Dosage: 1 WEEK
     Route: 048
  7. EPIDIOLEX ORAL SOLUTION [Concomitant]
     Dosage: 2 WEEK
     Route: 048
  8. EPIDIOLEX ORAL SOLUTION [Concomitant]
     Dosage: 3 WEEK
     Route: 048
  9. EPIDIOLEX ORAL SOLUTION [Concomitant]
     Dosage: 4 WEEK?LATER GIVE 3 ML TWICE A DAY THEREAFTER
     Route: 048
  10. ADVATE [Concomitant]
     Active Substance: ANTIHEMOPHILIC FACTOR, HUMAN RECOMBINANT

REACTIONS (5)
  - Seizure [Unknown]
  - Fall [Unknown]
  - Haemorrhage [Unknown]
  - Ligament sprain [Unknown]
  - Haemorrhage [Unknown]

NARRATIVE: CASE EVENT DATE: 20241031
